FAERS Safety Report 7064345-1 (Version None)
Quarter: 2010Q4

REPORT INFORMATION
  Report Type: 
  Country: None (occurrence: None)
  Receive Date: 20101027
  Receipt Date: 20101019
  Transmission Date: 20110411
  Serious: Yes (Death, Hospitalization, Other)
  Sender: FDA-Public Use
  Company Number: GB-SANOFI-AVENTIS-200213159GDDC

PATIENT
  Age: 75 Year
  Sex: Female
  Weight: 62.6 kg

DRUGS (16)
  1. LEFLUNOMIDE [Suspect]
     Indication: RHEUMATOID ARTHRITIS
     Route: 048
     Dates: start: 20020301
  2. CO-CODAMOL [Suspect]
     Indication: RHEUMATOID ARTHRITIS
     Dosage: DOSE AS USED: UNK
     Dates: start: 20020301
  3. DILTIAZEM HYDROCHLORIDE [Suspect]
     Indication: HYPERTENSION
     Dosage: DOSE AS USED: UNK
     Dates: end: 20020301
  4. ASPIRIN [Suspect]
     Dosage: DOSE AS USED: UNK
     Dates: start: 20020301
  5. BUDESONIDE [Suspect]
     Indication: ASTHMA
     Dosage: DOSE AS USED: UNK
     Dates: start: 20020301
  6. LANSOPRAZOLE [Suspect]
     Indication: DUODENAL ULCER
     Dosage: DOSE AS USED: UNK
     Dates: start: 20020301
  7. LISINOPRIL [Suspect]
     Dosage: DOSE AS USED: UNK
     Dates: start: 20020301
  8. GLYCERYL TRINITRATE [Suspect]
     Dosage: DOSE AS USED: UMNK
     Route: 048
     Dates: start: 20020301
  9. ATORVASTATIN [Suspect]
     Dosage: DOSE AS USED: UNK
     Dates: start: 19990101
  10. QUININE SULFATE [Suspect]
     Dosage: DOSE AS USED: UNK
  11. PROPOFOL [Suspect]
     Dosage: DOSE AS USED: UNK
     Route: 042
     Dates: start: 20020301, end: 20020301
  12. MIDAZOLAM [Suspect]
     Dosage: DOSE AS USED: UNK
     Route: 042
     Dates: start: 20020301, end: 20020301
  13. FENTANYL CITRATE [Suspect]
     Dosage: DOSE AS USED: UNK
     Route: 042
     Dates: start: 20020301, end: 20020301
  14. PANCURONIUM BROMIDE [Suspect]
     Indication: MUSCLE RELAXANT THERAPY
     Dosage: DOSE AS USED: UNK
     Dates: start: 20020301, end: 20020301
  15. FLIXONASE [Concomitant]
     Route: 045
  16. NITROGLYCERIN [Concomitant]
     Indication: ANGINA PECTORIS
     Dosage: DOSE AS USED: UNK

REACTIONS (12)
  - ABDOMINAL PAIN UPPER [None]
  - ABDOMINAL RIGIDITY [None]
  - ACUTE HEPATIC FAILURE [None]
  - CORONARY ARTERY DISEASE [None]
  - DIVERTICULITIS [None]
  - DUODENAL ULCER [None]
  - GASTROINTESTINAL HAEMORRHAGE [None]
  - HAEMATEMESIS [None]
  - INTESTINAL ISCHAEMIA [None]
  - LABILE BLOOD PRESSURE [None]
  - MULTI-ORGAN FAILURE [None]
  - RENAL FAILURE [None]
